FAERS Safety Report 10197245 (Version 1)
Quarter: 2014Q2

REPORT INFORMATION
  Report Type: Spontaneous
  Country: US (occurrence: US)
  Receive Date: 20140527
  Receipt Date: 20140527
  Transmission Date: 20141212
  Serious: Yes (Hospitalization)
  Sender: FDA-Public Use
  Company Number: US-GLAXOSMITHKLINE-A1074607A

PATIENT
  Sex: Female

DRUGS (4)
  1. MEKINIST [Suspect]
     Indication: PRODUCT USED FOR UNKNOWN INDICATION
     Dosage: 2MG UNKNOWN
     Route: 065
  2. MAXIDEX [Concomitant]
  3. FLUCONAZOLE [Concomitant]
  4. OXYCODONE [Concomitant]

REACTIONS (1)
  - Investigation [Unknown]
